FAERS Safety Report 5937172-3 (Version None)
Quarter: 2008Q4

REPORT INFORMATION
  Report Type: 
  Country: None (occurrence: None)
  Receive Date: 20081031
  Receipt Date: 20081022
  Transmission Date: 20090506
  Serious: Yes (Death, Other)
  Sender: FDA-Public Use
  Company Number: CA-JNJFOC-20081005677

PATIENT
  Sex: Female

DRUGS (1)
  1. REMICADE [Suspect]
     Indication: SARCOIDOSIS

REACTIONS (2)
  - HIP ARTHROPLASTY [None]
  - OSTEONECROSIS [None]
